FAERS Safety Report 14907997 (Version 2)
Quarter: 2018Q3

REPORT INFORMATION
  Report Type: Spontaneous
  Country: JP (occurrence: JP)
  Receive Date: 20180517
  Receipt Date: 20180802
  Transmission Date: 20181010
  Serious: Yes (Other)
  Sender: FDA-Public Use
  Company Number: JP-BRISTOL-MYERS SQUIBB COMPANY-BMS-2018-044989

PATIENT
  Age: 54 Year
  Sex: Male

DRUGS (1)
  1. OPDIVO [Suspect]
     Active Substance: NIVOLUMAB
     Indication: RENAL CELL CARCINOMA
     Dosage: 320 MG, Q2WK
     Route: 041
     Dates: start: 20180423, end: 20180423

REACTIONS (4)
  - Blood glucose increased [Not Recovered/Not Resolved]
  - Metastases to bone [Unknown]
  - Hypothyroidism [Unknown]
  - Rash [Unknown]

NARRATIVE: CASE EVENT DATE: 2018
